FAERS Safety Report 7415011-1 (Version None)
Quarter: 2011Q2

REPORT INFORMATION
  Report Type: 
  Country: None (occurrence: None)
  Receive Date: 20110414
  Receipt Date: 20110404
  Transmission Date: 20111010
  Serious: Yes (Other)
  Sender: FDA-Public Use
  Company Number: US-ROCHE-751326

PATIENT
  Sex: Female
  Weight: 64.4 kg

DRUGS (3)
  1. ORTHO TRI-CYCLEN [Concomitant]
  2. FIBERCON [Concomitant]
  3. ACCUTANE [Suspect]
     Indication: ACNE CYSTIC
     Route: 065
     Dates: start: 19960201, end: 19960501

REACTIONS (13)
  - IMPAIRED GASTRIC EMPTYING [None]
  - DEPRESSION [None]
  - PRURITUS [None]
  - HAEMORRHOIDS [None]
  - IRRITABLE BOWEL SYNDROME [None]
  - ALOPECIA AREATA [None]
  - PANIC ATTACK [None]
  - INFLAMMATORY BOWEL DISEASE [None]
  - EMOTIONAL DISTRESS [None]
  - GASTRITIS [None]
  - CYSTITIS INTERSTITIAL [None]
  - ANAEMIA [None]
  - SUICIDAL IDEATION [None]
